FAERS Safety Report 16887019 (Version 1)
Quarter: 2019Q4

REPORT INFORMATION
  Report Type: Spontaneous
  Country: US (occurrence: US)
  Receive Date: 20191004
  Receipt Date: 20191004
  Transmission Date: 20200122
  Serious: Yes (Hospitalization)
  Sender: FDA-Public Use
  Company Number: US-FRESENIUS KABI-FK201910887

PATIENT
  Age: 45 Year
  Sex: Male

DRUGS (1)
  1. GENTAMICIN (MANUFACTURER UNKNOWN) [Suspect]
     Active Substance: GENTAMICIN
     Indication: PNEUMONIA
     Route: 065

REACTIONS (1)
  - Renal failure [Recovering/Resolving]
